FAERS Safety Report 10502625 (Version 4)
Quarter: 2015Q4

REPORT INFORMATION
  Report Type: Report from Study
  Country: JP (occurrence: JP)
  Receive Date: 20141007
  Receipt Date: 20151009
  Transmission Date: 20160304
  Serious: Yes (Hospitalization)
  Sender: FDA-Public Use
  Company Number: JP-BAYER-2014-111000

PATIENT
  Age: 63 Year
  Sex: Male
  Weight: 56 kg

DRUGS (5)
  1. STIVARGA [Suspect]
     Active Substance: REGORAFENIB
     Indication: COLON CANCER
     Dosage: 120 MG, QD
     Route: 048
     Dates: start: 20140715, end: 20140719
  2. MAGMITT [Concomitant]
     Active Substance: MAGNESIUM OXIDE
     Indication: COLON CANCER
     Dosage: DAILY DOSE 990 MG
     Route: 048
     Dates: start: 20130709
  3. NEXIUM [Concomitant]
     Active Substance: ESOMEPRAZOLE MAGNESIUM
     Indication: PROPHYLAXIS AGAINST GASTROINTESTINAL ULCER
     Dosage: DAILY DOSE 20 MG
     Route: 048
     Dates: start: 20130710
  4. FERROMIA [Concomitant]
     Active Substance: FERROUS CITRATE
     Indication: COLON CANCER
     Dosage: DAILY DOSE 100 MG
     Route: 048
     Dates: start: 20130802
  5. URSO [Concomitant]
     Active Substance: URSODIOL
     Dosage: DAILY DOSE 600 MG
     Route: 048
     Dates: start: 20130927

REACTIONS (2)
  - Malaise [Recovered/Resolved]
  - Asthenia [Recovered/Resolved]

NARRATIVE: CASE EVENT DATE: 20140717
